FAERS Safety Report 20473522 (Version 1)
Quarter: 2022Q1

REPORT INFORMATION
  Report Type: Other
  Country: PT (occurrence: PT)
  Receive Date: 20220215
  Receipt Date: 20220215
  Transmission Date: 20220424
  Serious: Yes (Disabling)
  Sender: FDA-Public Use
  Company Number: PT-CELLTRION HEALTHCARE HUNGARY KFT-2022PT001021

PATIENT

DRUGS (1)
  1. RITUXIMAB [Suspect]
     Active Substance: RITUXIMAB
     Indication: Susac^s syndrome
     Route: 065

REACTIONS (3)
  - Hemiparesis [Recovering/Resolving]
  - Drug effective for unapproved indication [Unknown]
  - Off label use [Unknown]
